FAERS Safety Report 20290461 (Version 2)
Quarter: 2022Q1

REPORT INFORMATION
  Report Type: Other
  Country: JP (occurrence: None)
  Receive Date: 20220104
  Receipt Date: 20220225
  Transmission Date: 20220423
  Serious: Yes (Hospitalization)
  Sender: FDA-Public Use
  Company Number: JP-ROCHE-2995572

PATIENT
  Age: 69 Year
  Sex: Male
  Weight: 53 kg

DRUGS (13)
  1. RITUXIMAB [Suspect]
     Active Substance: RITUXIMAB
     Indication: Chronic lymphocytic leukaemia
     Route: 041
     Dates: start: 20210120, end: 20210120
  2. RITUXIMAB [Suspect]
     Active Substance: RITUXIMAB
     Route: 041
     Dates: start: 20210217, end: 20210217
  3. RITUXIMAB [Suspect]
     Active Substance: RITUXIMAB
     Route: 041
     Dates: start: 20210317, end: 20210317
  4. RITUXIMAB [Suspect]
     Active Substance: RITUXIMAB
     Route: 041
     Dates: start: 20210414, end: 20210414
  5. RITUXIMAB [Suspect]
     Active Substance: RITUXIMAB
     Route: 041
     Dates: start: 20210609, end: 20210609
  6. RITUXIMAB [Suspect]
     Active Substance: RITUXIMAB
     Route: 041
     Dates: start: 20210707, end: 20210707
  7. VENETOCLAX [Concomitant]
     Active Substance: VENETOCLAX
     Route: 048
     Dates: start: 20210217, end: 20210217
  8. VENETOCLAX [Concomitant]
     Active Substance: VENETOCLAX
     Route: 048
     Dates: start: 20210120, end: 20210120
  9. VENETOCLAX [Concomitant]
     Active Substance: VENETOCLAX
     Route: 048
     Dates: start: 20210317, end: 20210317
  10. VENETOCLAX [Concomitant]
     Active Substance: VENETOCLAX
     Route: 048
     Dates: start: 20210414, end: 20210414
  11. VENETOCLAX [Concomitant]
     Active Substance: VENETOCLAX
     Route: 048
     Dates: start: 20210512, end: 20210512
  12. VENETOCLAX [Concomitant]
     Active Substance: VENETOCLAX
     Route: 048
     Dates: start: 20210609, end: 20210609
  13. SULFAMETHOXAZOLE\TRIMETHOPRIM [Concomitant]
     Active Substance: SULFAMETHOXAZOLE\TRIMETHOPRIM
     Route: 048
     Dates: start: 20201020

REACTIONS (1)
  - Cholecystitis [Recovered/Resolved]

NARRATIVE: CASE EVENT DATE: 20210511
